FAERS Safety Report 9507313 (Version 1)
Quarter: 2013Q3

REPORT INFORMATION
  Report Type: Spontaneous
  Country: US (occurrence: None)
  Receive Date: 20130904
  Receipt Date: 20130904
  Transmission Date: 20140515
  Serious: Yes (Life-Threatening, Hospitalization)
  Sender: FDA-Public Use
  Company Number: PC0000746

PATIENT
  Age: 44 Year
  Sex: Female
  Weight: 117 kg

DRUGS (14)
  1. AMMONIA N 13 [Suspect]
     Indication: CORONARY ARTERY DISEASE
     Route: 042
  2. VENTOLIN [Concomitant]
  3. ELAVIL [Concomitant]
  4. ASPIRIN [Concomitant]
  5. LIPITOR [Concomitant]
  6. KLONOPIN [Concomitant]
  7. BOREG [Concomitant]
  8. PEPCID [Concomitant]
  9. FLONASE [Concomitant]
  10. IMDUR [Concomitant]
  11. SYNTHROID [Concomitant]
  12. PRINIVIL [Concomitant]
  13. NITROSTAT [Concomitant]
  14. ULTRAM [Concomitant]

REACTIONS (1)
  - Acute myocardial infarction [None]
